FAERS Safety Report 11182413 (Version 1)
Quarter: 2015Q2

REPORT INFORMATION
  Report Type: Spontaneous
  Country: US (occurrence: US)
  Receive Date: 20150611
  Receipt Date: 20150611
  Transmission Date: 20150821
  Serious: No
  Sender: FDA-Public Use
  Company Number: US-ASTELLAS-2015US018361

PATIENT
  Sex: Male

DRUGS (1)
  1. XTANDI [Suspect]
     Active Substance: ENZALUTAMIDE
     Indication: PROSTATE CANCER
     Route: 048

REACTIONS (8)
  - Feeling jittery [Unknown]
  - Asthenia [Unknown]
  - Weight decreased [Unknown]
  - Tremor [Unknown]
  - Arthralgia [Unknown]
  - Peripheral swelling [Unknown]
  - Back pain [Unknown]
  - Decreased appetite [Unknown]
